FAERS Safety Report 7006412-4 (Version None)
Quarter: 2010Q3

REPORT INFORMATION
  Report Type: 
  Country: None (occurrence: None)
  Receive Date: 20100909
  Receipt Date: 20100827
  Transmission Date: 20110219
  Serious: Yes (Hospitalization)
  Sender: FDA-Public Use
  Company Number: WAES 1008USA00685

PATIENT
  Age: 76 Year
  Sex: Female

DRUGS (6)
  1. FOSAMAX [Suspect]
     Indication: OSTEOPOROSIS
     Dosage: 35 MG/WKY PO
     Route: 048
     Dates: start: 20081129
  2. DIOVAN [Suspect]
     Indication: HYPERTENSION
     Dosage: 80 MG/BID PO
     Route: 048
  3. NORVASC [Suspect]
     Indication: HYPERTENSION
     Dosage: 5 MG/DAILY PO
     Route: 048
  4. PRAVASTATIN [Suspect]
     Indication: HYPERCHOLESTEROLAEMIA
     Dosage: 10 MG/DAILY PO
     Route: 048
  5. KETOPROFEN [Suspect]
     Indication: ARTHROPATHY
     Dosage: TOP
     Route: 061
     Dates: start: 20091022
  6. TAB GLUCOSAMINE [Suspect]
     Indication: OSTEOARTHRITIS
     Dosage: 10 TAB/DAILY PO
     Route: 048
     Dates: start: 20090603

REACTIONS (1)
  - CATARACT [None]
